FAERS Safety Report 9016449 (Version 2)
Quarter: 2013Q3

REPORT INFORMATION
  Report Type: Spontaneous
  Country: US (occurrence: US)
  Receive Date: 20130116
  Receipt Date: 20130802
  Transmission Date: 20140515
  Serious: No
  Sender: FDA-Public Use
  Company Number: US-B.I. PHARMACEUTICALS,INC./RIDGEFIELD-2013-BI-00066BP

PATIENT
  Age: 79 Year
  Sex: Male
  Weight: 89 kg

DRUGS (19)
  1. PRADAXA [Suspect]
     Indication: ATRIAL FIBRILLATION
     Dosage: 300 MG
     Route: 048
     Dates: start: 201110
  2. PRADAXA [Suspect]
     Indication: CEREBROVASCULAR ACCIDENT PROPHYLAXIS
  3. CARVEDILOL [Concomitant]
     Indication: HYPERTENSION
     Dosage: 25 MG
     Route: 048
     Dates: start: 201010
  4. BENICAR [Concomitant]
     Indication: HYPERTENSION
     Dosage: 300 MG
     Route: 048
     Dates: start: 201002
  5. BENICAR [Concomitant]
     Indication: BLOOD CHOLESTEROL INCREASED
     Dosage: 40 MG
     Route: 048
  6. AMLODIPINE [Concomitant]
     Indication: HYPERTENSION
     Dosage: 10 MG
     Route: 048
     Dates: start: 2010
  7. ASPIRIN [Concomitant]
     Indication: CARDIOVASCULAR EVENT PROPHYLAXIS
     Dosage: 81 MG
     Route: 048
  8. RED YEAST RICE [Concomitant]
     Indication: BLOOD CHOLESTEROL INCREASED
     Dosage: 500 MG
     Route: 048
  9. COQ10 [Concomitant]
     Indication: CARDIOVASCULAR EVENT PROPHYLAXIS
     Dosage: 100 MG
     Route: 048
  10. GLYBURIDE [Concomitant]
     Indication: DIABETES MELLITUS
     Dosage: 5 MG
     Route: 048
  11. FISH OIL [Concomitant]
     Indication: CARDIOVASCULAR EVENT PROPHYLAXIS
     Dosage: 2000 MG
     Route: 048
  12. PROSTATE 5LX [Concomitant]
     Indication: PROPHYLAXIS
     Route: 048
  13. OSTEO BI-FLEX [Concomitant]
     Indication: OSTEOARTHRITIS
     Dosage: CAPLET
     Route: 048
  14. CENTRUM SILVER [Concomitant]
     Dosage: CAPLET
     Route: 048
  15. TURMERIC [Concomitant]
     Indication: PAIN IN EXTREMITY
     Route: 048
  16. MELATONIN [Concomitant]
     Indication: INSOMNIA
     Route: 048
  17. ALPRAZOLAM [Concomitant]
     Indication: INSOMNIA
     Route: 048
  18. SALINE [Concomitant]
     Indication: SINUS CONGESTION
     Dosage: NASAL SPRAY
     Route: 045
  19. REFRESH TEARS [Concomitant]
     Indication: DRY EYE
     Route: 031

REACTIONS (13)
  - Pain in extremity [Not Recovered/Not Resolved]
  - Contusion [Not Recovered/Not Resolved]
  - Nausea [Recovered/Resolved]
  - Cataract [Not Recovered/Not Resolved]
  - Limb discomfort [Not Recovered/Not Resolved]
  - Joint swelling [Not Recovered/Not Resolved]
  - Contusion [Not Recovered/Not Resolved]
  - Arthralgia [Not Recovered/Not Resolved]
  - Asthenia [Not Recovered/Not Resolved]
  - Asthenia [Not Recovered/Not Resolved]
  - Muscular weakness [Not Recovered/Not Resolved]
  - Loss of consciousness [Recovered/Resolved]
  - Eating disorder [Unknown]
